FAERS Safety Report 8990795 (Version 1)
Quarter: 2012Q4

REPORT INFORMATION
  Report Type: Spontaneous
  Country: US (occurrence: None)
  Receive Date: 20121226
  Receipt Date: 20121226
  Transmission Date: 20130627
  Serious: No
  Sender: FDA-Public Use
  Company Number: None

PATIENT
  Age: 39 Year
  Sex: Male
  Weight: 107.96 kg

DRUGS (1)
  1. INDOMETHACIN [Suspect]

REACTIONS (2)
  - Dizziness [None]
  - Nausea [None]
